FAERS Safety Report 15575230 (Version 1)
Quarter: 2018Q4

REPORT INFORMATION
  Report Type: Spontaneous
  Country: US (occurrence: US)
  Receive Date: 20181101
  Receipt Date: 20181101
  Transmission Date: 20190205
  Serious: Yes (Other)
  Sender: FDA-Public Use
  Company Number: None

PATIENT
  Age: 28 Year
  Sex: Female
  Weight: 162 kg

DRUGS (13)
  1. LYRICA 75 DAILYMG [Concomitant]
  2. TOPOMAX 25MG BID [Concomitant]
  3. HYDROCLOROTHIAZIDE/SPIRONOLACTONE 50/50 [Concomitant]
  4. CLINDAMYCIN GEL [Concomitant]
  5. EFFEXORMG 112.5 [Concomitant]
  6. PROTONIX 40MG BID [Concomitant]
  7. HUMIRA [Suspect]
     Active Substance: ADALIMUMAB
     Indication: HIDRADENITIS
     Dosage: ?          OTHER FREQUENCY:WEEKLY;?
     Route: 058
     Dates: start: 20170501, end: 20181101
  8. LATUDA 40 DAILYMG [Concomitant]
  9. AVIAN 100/20 MCG [Concomitant]
  10. WELLBUTRIN 100 BID [Concomitant]
  11. VICTOZA 1.8MG  DAILY [Concomitant]
  12. KLONOPIN 1 MG BID [Concomitant]
  13. METFORMIN 500 BID [Concomitant]
     Active Substance: METFORMIN HYDROCHLORIDE

REACTIONS (2)
  - Psoriasis [None]
  - Rash [None]

NARRATIVE: CASE EVENT DATE: 20181101
